FAERS Safety Report 12091314 (Version 1)
Quarter: 2016Q1

REPORT INFORMATION
  Report Type: Spontaneous
  Country: DE (occurrence: DE)
  Receive Date: 20160218
  Receipt Date: 20160218
  Transmission Date: 20160526
  Serious: Yes (Other)
  Sender: FDA-Public Use
  Company Number: GXKR2016DE000897

PATIENT

DRUGS (1)
  1. METOHEXAL [Suspect]
     Active Substance: METOPROLOL SUCCINATE
     Indication: PRODUCT USED FOR UNKNOWN INDICATION

REACTIONS (11)
  - Abdominal pain [Recovered/Resolved]
  - Angina pectoris [Recovered/Resolved]
  - Dysgeusia [Recovered/Resolved]
  - Sensation of foreign body [Recovered/Resolved]
  - Weight increased [Recovered/Resolved]
  - Flatulence [Recovered/Resolved]
  - Diarrhoea [Recovered/Resolved]
  - Insomnia [Recovered/Resolved]
  - Dysstasia [Recovered/Resolved]
  - Respiratory distress [Recovered/Resolved]
  - Fatigue [Recovered/Resolved]
